FAERS Safety Report 11471730 (Version 1)
Quarter: 2015Q3

REPORT INFORMATION
  Report Type: Report from Study
  Country: BR (occurrence: BR)
  Receive Date: 20150908
  Receipt Date: 20150908
  Transmission Date: 20151125
  Serious: Yes (Other)
  Sender: FDA-Public Use
  Company Number: PHHY2015BR107922

PATIENT
  Sex: Male
  Weight: 106 kg

DRUGS (1)
  1. SANDOSTATIN [Suspect]
     Active Substance: OCTREOTIDE ACETATE
     Indication: ACRAL OVERGROWTH
     Dosage: UNK, EVERY 15 DAYS
     Route: 065
     Dates: start: 2007

REACTIONS (2)
  - Off label use [Unknown]
  - Single functional kidney [Unknown]
